FAERS Safety Report 9206565 (Version 2)
Quarter: 2013Q4

REPORT INFORMATION
  Report Type: Spontaneous
  Country: US (occurrence: US)
  Receive Date: 20130403
  Receipt Date: 20131226
  Transmission Date: 20140711
  Serious: Yes (Other)
  Sender: FDA-Public Use
  Company Number: US-BAYER-2013-040699

PATIENT
  Age: 30 Year
  Sex: Female

DRUGS (1)
  1. YAZ [Suspect]
     Indication: ACNE

REACTIONS (6)
  - Cholecystitis [None]
  - Injury [None]
  - Pain [None]
  - Pain [None]
  - Cholecystitis [None]
  - Biliary dyskinesia [None]
